FAERS Safety Report 12214570 (Version 1)
Quarter: 2016Q1

REPORT INFORMATION
  Report Type: Report from Study
  Country: DE (occurrence: DE)
  Receive Date: 20160328
  Receipt Date: 20160328
  Transmission Date: 20160526
  Serious: Yes (Hospitalization)
  Sender: FDA-Public Use
  Company Number: DE-ABBVIE-16K-062-1588610-00

PATIENT
  Sex: Male

DRUGS (1)
  1. HUMIRA [Suspect]
     Active Substance: ADALIMUMAB
     Indication: PSORIATIC ARTHROPATHY
     Route: 058
     Dates: start: 2006, end: 20160314

REACTIONS (5)
  - Chills [Recovering/Resolving]
  - Arthritis [Recovering/Resolving]
  - Pyrexia [Recovering/Resolving]
  - Joint destruction [Recovering/Resolving]
  - Septic arthritis staphylococcal [Recovering/Resolving]
